FAERS Safety Report 12401264 (Version 2)
Quarter: 2016Q2

REPORT INFORMATION
  Report Type: Spontaneous
  Country: DE (occurrence: DE)
  Receive Date: 20160525
  Receipt Date: 20160616
  Transmission Date: 20160815
  Serious: Yes (Other)
  Sender: FDA-Public Use
  Company Number: DE-ASTELLAS-2016US017426

PATIENT
  Sex: Female
  Weight: 59 kg

DRUGS (3)
  1. PROTOPIC [Suspect]
     Active Substance: TACROLIMUS
     Indication: ECZEMA
     Dosage: PEA SIZE, UNKNOWN FREQ.
     Route: 061
     Dates: start: 20160428, end: 20160428
  2. PREDNICARBAT ACIS [Concomitant]
     Dosage: UNK, ONCE DAILY
     Route: 065
  3. PREDNICARBAT ACIS [Concomitant]
     Indication: ECZEMA
     Dosage: UNK UNK, TWICE DAILY
     Route: 065

REACTIONS (4)
  - Body temperature increased [Recovered/Resolved]
  - Erythema [Recovered/Resolved]
  - Urticaria [Recovered/Resolved]
  - Off label use [Unknown]

NARRATIVE: CASE EVENT DATE: 20160428
